FAERS Safety Report 25405433 (Version 1)
Quarter: 2025Q2

REPORT INFORMATION
  Report Type: Spontaneous
  Country: RS (occurrence: RS)
  Receive Date: 20250606
  Receipt Date: 20250606
  Transmission Date: 20250717
  Serious: Yes (Other)
  Sender: EMD SERONO INC
  Company Number: RS-Merck Healthcare KGaA-2025027988

PATIENT
  Age: 36 Year
  Sex: Female

DRUGS (5)
  1. REBIF [Suspect]
     Active Substance: INTERFERON BETA-1A
     Indication: Multiple sclerosis
  2. REBIF [Suspect]
     Active Substance: INTERFERON BETA-1A
  3. REBIF [Suspect]
     Active Substance: INTERFERON BETA-1A
  4. DIANA [Concomitant]
     Indication: Menstruation irregular
  5. PREGABALIN [Concomitant]
     Active Substance: PREGABALIN
     Indication: Sensory disturbance

REACTIONS (3)
  - Premature separation of placenta [Unknown]
  - Live birth [Recovered/Resolved]
  - Maternal exposure during pregnancy [Recovered/Resolved]
